FAERS Safety Report 24697451 (Version 2)
Quarter: 2025Q3

REPORT INFORMATION
  Report Type: Report from Study
  Country: US (occurrence: US)
  Receive Date: 20241204
  Receipt Date: 20250810
  Transmission Date: 20251021
  Serious: Yes (Other)
  Sender: ALEXION PHARMACEUTICALS
  Company Number: US-ASTRAZENECA-202411USA021493US

PATIENT
  Sex: Female

DRUGS (1)
  1. STRENSIQ [Suspect]
     Active Substance: ASFOTASE ALFA
     Route: 065

REACTIONS (23)
  - Sjogren^s syndrome [Unknown]
  - Vitamin B6 abnormal [Unknown]
  - Therapy non-responder [Unknown]
  - Pain [Unknown]
  - Fatigue [Unknown]
  - Exercise tolerance decreased [Unknown]
  - Action tremor [Unknown]
  - Musculoskeletal discomfort [Unknown]
  - Arthralgia [Unknown]
  - Peripheral swelling [Unknown]
  - Rash [Unknown]
  - Insomnia [Unknown]
  - Dysphonia [Unknown]
  - Stomatitis [Unknown]
  - Eye inflammation [Unknown]
  - Diarrhoea [Unknown]
  - Dyspepsia [Unknown]
  - Weight increased [Unknown]
  - Paraesthesia [Unknown]
  - Back pain [Unknown]
  - Musculoskeletal stiffness [Unknown]
  - Hypoaesthesia [Unknown]
  - Increased tendency to bruise [Unknown]
